FAERS Safety Report 4867608-0 (Version None)
Quarter: 2005Q4

REPORT INFORMATION
  Report Type: 
  Country: None (occurrence: None)
  Receive Date: 20051222
  Receipt Date: 20051212
  Transmission Date: 20060501
  Serious: Yes (Other)
  Sender: FDA-Public Use
  Company Number: 220238

PATIENT
  Age: 50 Year
  Sex: Male

DRUGS (8)
  1. AVASTIN [Suspect]
     Dosage: Q2W, INTRAVENOUS
     Route: 042
  2. OXALIPLATIN (OXALIPLATIN) [Concomitant]
  3. FLUOROURACIL [Concomitant]
  4. LEUCOVORIN CALCIUM [Concomitant]
  5. KYTRIL [Concomitant]
  6. DEXAMETHASONE [Concomitant]
  7. CALCIUM (CALCIUM NOS) [Concomitant]
  8. MAGNESIUM SULFATE [Concomitant]

REACTIONS (3)
  - BONE MARROW FAILURE [None]
  - DIALYSIS [None]
  - THROMBOCYTOPENIC PURPURA [None]
